FAERS Safety Report 9002203 (Version 1)
Quarter: 2013Q1

REPORT INFORMATION
  Report Type: Spontaneous
  Country: US (occurrence: None)
  Receive Date: 20130103
  Receipt Date: 20130103
  Transmission Date: 20140127
  Serious: Yes (Hospitalization, Other)
  Sender: FDA-Public Use
  Company Number: None

PATIENT
  Age: 73 Year
  Sex: Male
  Weight: 71.3 kg

DRUGS (2)
  1. MIRAPEX ER [Suspect]
     Indication: PARKINSON^S DISEASE
     Dosage: MIRAPEX ER 0.75 MG DAILY PO
     Route: 048
     Dates: start: 20111231, end: 20121203
  2. MIRAPEX ER [Suspect]
     Indication: PARKINSON^S DISEASE
     Dosage: MIRAPEX ER 1.5 MG DAILY PO
     Route: 048
     Dates: start: 20121204, end: 20121231

REACTIONS (8)
  - Cardiac failure [None]
  - Orthostatic hypotension [None]
  - Syncope [None]
  - Oedema peripheral [None]
  - Fatigue [None]
  - Palpitations [None]
  - Atrial fibrillation [None]
  - Weight increased [None]
